FAERS Safety Report 10510303 (Version 2)
Quarter: 2014Q4

REPORT INFORMATION
  Report Type: Spontaneous
  Country: BR (occurrence: BR)
  Receive Date: 20141010
  Receipt Date: 20141024
  Transmission Date: 20150528
  Serious: Yes (Other)
  Sender: FDA-Public Use
  Company Number: BR-JNJFOC-20141003051

PATIENT
  Sex: Female
  Weight: 60 kg

DRUGS (1)
  1. REMINYL [Suspect]
     Active Substance: GALANTAMINE
     Indication: DEMENTIA ALZHEIMER^S TYPE
     Route: 065
     Dates: start: 2011, end: 2011

REACTIONS (7)
  - Weight decreased [Recovered/Resolved]
  - Product use issue [Unknown]
  - Decreased appetite [Recovered/Resolved]
  - Malaise [Recovered/Resolved]
  - Abdominal discomfort [Recovered/Resolved]
  - Dizziness [Recovered/Resolved]
  - Adverse event [Recovered/Resolved]

NARRATIVE: CASE EVENT DATE: 2011
